FAERS Safety Report 8088625-6 (Version None)
Quarter: 2012Q1

REPORT INFORMATION
  Report Type: 
  Country: None (occurrence: None)
  Receive Date: 20120128
  Receipt Date: 20110504
  Transmission Date: 20120608
  Serious: No
  Sender: FDA-Public Use
  Company Number: US-ABBOTT-11P-163-0723312-00

PATIENT
  Sex: Female

DRUGS (3)
  1. LEUKOPRENE [Concomitant]
     Indication: PRODUCT USED FOR UNKNOWN INDICATION
     Dosage: GIVEN 24 HOURS AFTER METHOTREXATE
  2. HUMIRA [Suspect]
     Indication: UVEITIS
     Route: 058
     Dates: start: 20110428
  3. METHOTREXATE [Concomitant]
     Indication: PRODUCT USED FOR UNKNOWN INDICATION
     Dosage: 0.4 MGS ONE TIME WEEKLY

REACTIONS (1)
  - INJECTION SITE PAIN [None]
